FAERS Safety Report 10574547 (Version 1)
Quarter: 2014Q4

REPORT INFORMATION
  Report Type: Other
  Country: US (occurrence: US)
  Receive Date: 20141110
  Receipt Date: 20141110
  Transmission Date: 20150529
  Serious: Yes (Other)
  Sender: FDA-Public Use
  Company Number: US-SHIRE-US201407548

PATIENT
  Age: 16 Year
  Sex: Male

DRUGS (1)
  1. VYVANSE [Suspect]
     Active Substance: LISDEXAMFETAMINE DIMESYLATE
     Indication: PRODUCT USED FOR UNKNOWN INDICATION
     Dosage: 30 MG, 1X/DAY:QD
     Route: 048
     Dates: start: 20141012

REACTIONS (4)
  - Disturbance in attention [Unknown]
  - Agitation [Unknown]
  - Restlessness [Unknown]
  - Insomnia [Unknown]

NARRATIVE: CASE EVENT DATE: 201410
